FAERS Safety Report 25730949 (Version 1)
Quarter: 2025Q3

REPORT INFORMATION
  Report Type: Spontaneous
  Country: US (occurrence: None)
  Receive Date: 20250826
  Receipt Date: 20250826
  Transmission Date: 20251021
  Serious: Yes (Disabling)
  Sender: FDA-CTU
  Company Number: None

PATIENT
  Age: 52 Year
  Sex: Female
  Weight: 110.25 kg

DRUGS (6)
  1. TRULICITY [Suspect]
     Active Substance: DULAGLUTIDE
     Route: 030
     Dates: start: 20230301, end: 20240531
  2. TRULICITY [Suspect]
     Active Substance: DULAGLUTIDE
  3. TRULICITY [Suspect]
     Active Substance: DULAGLUTIDE
  4. METFORMIN [Concomitant]
     Active Substance: METFORMIN HYDROCHLORIDE
  5. GLIMEPIRIDE [Concomitant]
     Active Substance: GLIMEPIRIDE
  6. ATORVASTATIN [Concomitant]
     Active Substance: ATORVASTATIN

REACTIONS (3)
  - Diabetic retinopathy [None]
  - Impaired driving ability [None]
  - Impaired work ability [None]

NARRATIVE: CASE EVENT DATE: 20231119
